FAERS Safety Report 5086763-3 (Version None)
Quarter: 2006Q3

REPORT INFORMATION
  Report Type: 
  Country: None (occurrence: None)
  Receive Date: 20060823
  Receipt Date: 20060817
  Transmission Date: 20061208
  Serious: Yes (Hospitalization)
  Sender: FDA-Public Use
  Company Number: 2006AP03854

PATIENT
  Age: 31257 Day
  Sex: Male

DRUGS (2)
  1. IRESSA [Suspect]
     Indication: NON-SMALL CELL LUNG CANCER STAGE IIIB
     Route: 048
     Dates: start: 20060331, end: 20060813
  2. ALLOPURINOL [Concomitant]
     Indication: GOUTY ARTHRITIS

REACTIONS (3)
  - DIARRHOEA [None]
  - DYSPNOEA [None]
  - HAEMOPTYSIS [None]
